FAERS Safety Report 7749794-8 (Version None)
Quarter: 2011Q3

REPORT INFORMATION
  Report Type: 
  Country: None (occurrence: None)
  Receive Date: 20110914
  Receipt Date: 20110908
  Transmission Date: 20111222
  Serious: Yes (Other)
  Sender: FDA-Public Use
  Company Number: FR-BRISTOL-MYERS SQUIBB COMPANY-16049116

PATIENT
  Age: 35 Year
  Sex: Female

DRUGS (2)
  1. IMOVANE [Suspect]
  2. ABILIFY [Suspect]

REACTIONS (3)
  - MATERNAL EXPOSURE DURING PREGNANCY [None]
  - PSYCHOTIC DISORDER [None]
  - PREGNANCY [None]
